FAERS Safety Report 4691452-0 (Version None)
Quarter: 2005Q2

REPORT INFORMATION
  Report Type: 
  Country: None (occurrence: None)
  Receive Date: 20050613
  Receipt Date: 20050509
  Transmission Date: 20051028
  Serious: Yes (Other)
  Sender: FDA-Public Use
  Company Number: S05-USA-02505-01

PATIENT
  Age: 53 Year
  Sex: Female

DRUGS (4)
  1. LEXAPRO [Suspect]
     Indication: DEPRESSION
     Dosage: 10 MG ONCE PO
     Route: 048
     Dates: start: 20050101, end: 20050101
  2. GEMZAR [Concomitant]
  3. TAXOTERE [Concomitant]
  4. ALEVE [Concomitant]

REACTIONS (4)
  - CONFUSIONAL STATE [None]
  - FEELING ABNORMAL [None]
  - SUICIDAL IDEATION [None]
  - THINKING ABNORMAL [None]
